FAERS Safety Report 5355522-6 (Version None)
Quarter: 2007Q2

REPORT INFORMATION
  Report Type: 
  Country: None (occurrence: None)
  Receive Date: 20070612
  Receipt Date: 20070612
  Transmission Date: 20071010
  Serious: No
  Sender: FDA-Public Use
  Company Number: None

PATIENT

DRUGS (6)
  1. COMBIVENT [Suspect]
     Dosage: AEROSOL
  2. ALBUTEROL [Suspect]
     Dosage: SOLUTION, CONCENTRATE
  3. ATROVENT HFA [Suspect]
     Dosage: AEROSOL
  4. AEROBID [Suspect]
  5. FLOVENT [Suspect]
  6. FLONASE [Suspect]

REACTIONS (2)
  - INTERCEPTED DRUG DISPENSING ERROR [None]
  - MEDICATION ERROR [None]
